FAERS Safety Report 9504786 (Version 2)
Quarter: 2013Q3

REPORT INFORMATION
  Report Type: Spontaneous
  Country: US (occurrence: US)
  Receive Date: 20130906
  Receipt Date: 20130906
  Transmission Date: 20140515
  Serious: Yes (Hospitalization, Other)
  Sender: FDA-Public Use
  Company Number: US-009507513-1111USA02471

PATIENT
  Sex: Female
  Weight: 76.66 kg

DRUGS (6)
  1. FOSAMAX [Suspect]
     Dosage: 70 MG, QW
     Route: 048
     Dates: start: 200002, end: 20090525
  2. FOSAMAX [Suspect]
     Dosage: 10 MG, QD
     Route: 048
     Dates: start: 20000209
  3. FOSAMAX [Suspect]
     Dosage: 200 MG, QD
     Route: 048
     Dates: start: 20000613
  4. FOSAMAX [Suspect]
     Dosage: 70 MG, QD
     Route: 048
     Dates: start: 20010910
  5. BONIVA [Suspect]
     Indication: OSTEOPOROSIS
     Dosage: 150 MG, QM
     Route: 048
     Dates: start: 2009, end: 20100105
  6. BONIVA [Suspect]
     Indication: PAIN IN JAW

REACTIONS (75)
  - Myocardial infarction [Unknown]
  - Carpal tunnel syndrome [Unknown]
  - Throat tightness [Unknown]
  - Renal failure chronic [Unknown]
  - Osteonecrosis of jaw [Unknown]
  - Dysphagia [Unknown]
  - Oral infection [Unknown]
  - Exostosis [Unknown]
  - Gingival disorder [Unknown]
  - Stomatitis [Unknown]
  - Gingivitis [Unknown]
  - Blood cholesterol increased [Unknown]
  - Type 2 diabetes mellitus [Unknown]
  - Stomatitis [Unknown]
  - Osteomyelitis [Unknown]
  - Eye disorder [Unknown]
  - Ear infection [Unknown]
  - Dyspnoea [Not Recovered/Not Resolved]
  - Oropharyngeal pain [Unknown]
  - Visual acuity reduced [Unknown]
  - Carpal tunnel syndrome [Not Recovered/Not Resolved]
  - Gingival recession [Unknown]
  - Sensitivity of teeth [Unknown]
  - Tooth fracture [Unknown]
  - Hypertension [Unknown]
  - Chest pain [Not Recovered/Not Resolved]
  - Dry mouth [Unknown]
  - Renal disorder [Recovered/Resolved]
  - Dental caries [Unknown]
  - Gingival bleeding [Unknown]
  - Breath odour [Unknown]
  - Rubber sensitivity [Unknown]
  - Sinus disorder [Unknown]
  - Anaemia [Unknown]
  - Thrombocytopenia [Unknown]
  - Local swelling [Unknown]
  - Nasal ulcer [Unknown]
  - Neck mass [Unknown]
  - Subcutaneous abscess [Unknown]
  - Azotaemia [Unknown]
  - Adverse drug reaction [Unknown]
  - Contusion [Unknown]
  - Fatigue [Not Recovered/Not Resolved]
  - Sleep disorder [Unknown]
  - Rheumatoid arthritis [Unknown]
  - Overdose [Unknown]
  - Pollakiuria [Unknown]
  - Sinus tachycardia [Unknown]
  - Chest pain [Unknown]
  - Haemorrhoids [Unknown]
  - Palpitations [Unknown]
  - Weight increased [Unknown]
  - Epistaxis [Unknown]
  - Gallbladder disorder [Unknown]
  - Arteriosclerosis coronary artery [Unknown]
  - Hyperlipidaemia [Unknown]
  - Dysphonia [Unknown]
  - Haematochezia [Not Recovered/Not Resolved]
  - Memory impairment [Unknown]
  - Coronary artery restenosis [Unknown]
  - Barrett^s oesophagus [Unknown]
  - Muscle spasms [Unknown]
  - Pain in extremity [Unknown]
  - Tongue ulceration [Unknown]
  - Neck pain [Not Recovered/Not Resolved]
  - Diarrhoea [Unknown]
  - Arthralgia [Unknown]
  - Pain in extremity [Unknown]
  - Arthralgia [Unknown]
  - Musculoskeletal pain [Unknown]
  - Oedema peripheral [Unknown]
  - Myalgia [Unknown]
  - Oedema peripheral [Unknown]
  - Pain in extremity [Unknown]
  - Gastrooesophageal reflux disease [Unknown]
